FAERS Safety Report 8471851-1 (Version None)
Quarter: 2012Q2

REPORT INFORMATION
  Report Type: 
  Country: None (occurrence: None)
  Receive Date: 20120627
  Receipt Date: 20120619
  Transmission Date: 20120825
  Serious: Yes (Hospitalization)
  Sender: FDA-Public Use
  Company Number: US-BAYER-2012-019527

PATIENT
  Age: 22 Year
  Sex: Female
  Weight: 72.562 kg

DRUGS (2)
  1. YASMIN [Suspect]
     Dosage: UNK
     Dates: start: 20080101
  2. DROSPIRENONE AND ETHINYL ESTRADIOL [Suspect]
     Indication: CONTRACEPTION
     Dosage: UNK
     Dates: start: 20081001, end: 20090801

REACTIONS (5)
  - CHOLECYSTITIS [None]
  - EMOTIONAL DISTRESS [None]
  - PANCREATITIS [None]
  - VOMITING [None]
  - ABDOMINAL PAIN [None]
